FAERS Safety Report 16931813 (Version 3)
Quarter: 2019Q4

REPORT INFORMATION
  Report Type: Report from Study
  Country: PL (occurrence: PL)
  Receive Date: 20191017
  Receipt Date: 20191112
  Transmission Date: 20200122
  Serious: Yes (Death)
  Sender: FDA-Public Use
  Company Number: PL-PFIZER INC-2019447166

PATIENT
  Age: 68 Year
  Sex: Male
  Weight: 98 kg

DRUGS (2)
  1. GLASDEGIB [Suspect]
     Active Substance: GLASDEGIB
     Indication: ACUTE MYELOID LEUKAEMIA
     Dosage: ONCE DAILY CONTINUOUS
     Route: 048
     Dates: start: 20190822, end: 20191008
  2. AZACITIDINE. [Suspect]
     Active Substance: AZACITIDINE
     Indication: ACUTE MYELOID LEUKAEMIA
     Dosage: 168 MG, DAILY FOR 7 DAYS
     Route: 058
     Dates: start: 20190926, end: 20191002

REACTIONS (1)
  - Staphylococcal sepsis [Fatal]

NARRATIVE: CASE EVENT DATE: 20191008
